FAERS Safety Report 9274335 (Version 1)
Quarter: 2013Q2

REPORT INFORMATION
  Report Type: Spontaneous
  Country: US (occurrence: US)
  Receive Date: 20130506
  Receipt Date: 20130506
  Transmission Date: 20140414
  Serious: Yes (Other)
  Sender: FDA-Public Use
  Company Number: CHPA2013US007480

PATIENT
  Age: 64 Year
  Sex: Female

DRUGS (1)
  1. BENEFIBER SUGAR FREE [Suspect]
     Indication: SUPPLEMENTATION THERAPY
     Dosage: 3 DF, QD
     Route: 048
     Dates: end: 201205

REACTIONS (5)
  - Upper limb fracture [Recovered/Resolved]
  - Fall [Recovered/Resolved]
  - Herpes zoster [Unknown]
  - Influenza [Unknown]
  - Off label use [Unknown]
